FAERS Safety Report 4485050-1 (Version None)
Quarter: 2004Q3

REPORT INFORMATION
  Report Type: 
  Country: None (occurrence: None)
  Receive Date: 20040921
  Receipt Date: 20031215
  Transmission Date: 20050211
  Serious: Yes (Death, Hospitalization)
  Sender: FDA-Public Use
  Company Number: 2002-10-0089(1)

PATIENT
  Age: 55 Year
  Sex: Female

DRUGS (11)
  1. THALOMID [Suspect]
     Indication: MULTIPLE MYELOMA
     Dosage: 400 MG, QD, ORAL
     Route: 048
     Dates: start: 20020620, end: 20020702
  2. CYTOXAN [Suspect]
     Indication: MULTIPLE MYELOMA
     Dosage: 1300 MG, INTRAVENOUS
     Route: 042
     Dates: start: 20020917, end: 20020920
  3. ADRIAMYCIN PFS [Suspect]
     Indication: MULTIPLE MYELOMA
     Dosage: 40 MG, INTRAVENOUS; 40 MG, INTRAVENOUS; 72 MG, INTRAVENOUS; 18 MG, INTRAVENOUS
     Route: 042
     Dates: start: 20020701, end: 20020703
  4. ADRIAMYCIN PFS [Suspect]
     Indication: MULTIPLE MYELOMA
     Dosage: 40 MG, INTRAVENOUS; 40 MG, INTRAVENOUS; 72 MG, INTRAVENOUS; 18 MG, INTRAVENOUS
     Route: 042
     Dates: start: 20020705, end: 20020706
  5. ADRIAMYCIN PFS [Suspect]
     Indication: MULTIPLE MYELOMA
     Dosage: 40 MG, INTRAVENOUS; 40 MG, INTRAVENOUS; 72 MG, INTRAVENOUS; 18 MG, INTRAVENOUS
     Route: 042
     Dates: start: 20020917, end: 20020917
  6. ADRIAMYCIN PFS [Suspect]
     Indication: MULTIPLE MYELOMA
     Dosage: 40 MG, INTRAVENOUS; 40 MG, INTRAVENOUS; 72 MG, INTRAVENOUS; 18 MG, INTRAVENOUS
     Route: 042
     Dates: start: 20020917, end: 20020920
  7. VINCRISTINE [Suspect]
     Indication: MULTIPLE MYELOMA
     Dosage: 0.5 MG
     Dates: start: 20020701, end: 20020703
  8. VINCRISTINE [Suspect]
     Indication: MULTIPLE MYELOMA
     Dosage: 0.5 MG
     Dates: start: 20020705, end: 20020706
  9. DECADRON [Suspect]
     Indication: MULTIPLE MYELOMA
     Dosage: 15 MG, ORAL; 15 MG, ORAL; 40 MG, ORAL
     Route: 048
     Dates: start: 20020705, end: 20020706
  10. DECADRON [Suspect]
     Indication: MULTIPLE MYELOMA
     Dosage: 15 MG, ORAL; 15 MG, ORAL; 40 MG, ORAL
     Route: 048
     Dates: start: 20020917, end: 20020920
  11. DECADRON [Suspect]
     Indication: MULTIPLE MYELOMA
     Dosage: 15 MG, ORAL; 15 MG, ORAL; 40 MG, ORAL
     Route: 048
     Dates: start: 20030608, end: 20030609

REACTIONS (13)
  - ATAXIA [None]
  - BALANCE DISORDER [None]
  - DEATH [None]
  - DEEP VEIN THROMBOSIS [None]
  - DISEASE PROGRESSION [None]
  - DYSPNOEA [None]
  - DYSPNOEA EXERTIONAL [None]
  - FEBRILE NEUTROPENIA [None]
  - PERICARDIAL EFFUSION [None]
  - PLEURAL EFFUSION [None]
  - PNEUMONIA [None]
  - RALES [None]
  - SEPSIS [None]
